FAERS Safety Report 9118366 (Version 1)
Quarter: 2013Q1

REPORT INFORMATION
  Report Type: Spontaneous
  Country: US (occurrence: None)
  Receive Date: 20130221
  Receipt Date: 20130221
  Transmission Date: 20140127
  Serious: Yes (Other)
  Sender: FDA-Public Use
  Company Number: None

PATIENT
  Age: 17 Year
  Sex: Male
  Weight: 81.8 kg

DRUGS (1)
  1. MUCINEX [Suspect]
     Indication: FAECALOMA
     Dosage: 1 TABLET EVERY 12 HOURS ORALLY 047, TOTAL OF 8 TABLETS OVER 4 DAYS
     Route: 048
     Dates: start: 20130126, end: 20130129

REACTIONS (2)
  - Constipation [None]
  - Pain [None]
